FAERS Safety Report 10225098 (Version 1)
Quarter: 2014Q2

REPORT INFORMATION
  Report Type: Spontaneous
  Country: IT (occurrence: IT)
  Receive Date: 20140609
  Receipt Date: 20140609
  Transmission Date: 20141212
  Serious: Yes (Other)
  Sender: FDA-Public Use
  Company Number: IT-WATSON-2013-25251

PATIENT
  Age: 84 Year
  Sex: Male

DRUGS (6)
  1. OLMESARTAN MEDOXOMIL (UNKNOWN) [Suspect]
     Indication: PRODUCT USED FOR UNKNOWN INDICATION
     Dosage: 1 POSOLOGIC UNIT/DIE
     Route: 048
     Dates: start: 20120701, end: 20130630
  2. AMLODIPINE BESYLATE [Suspect]
     Indication: PRODUCT USED FOR UNKNOWN INDICATION
     Dosage: 1 POSOLOGIC UNIT/DIE
     Route: 048
     Dates: start: 20120701, end: 20130630
  3. RIOPAN [Concomitant]
     Indication: PRODUCT USED FOR UNKNOWN INDICATION
     Dosage: 80 MG/ML
     Route: 048
  4. ASCRIPTIN [Concomitant]
     Indication: PRODUCT USED FOR UNKNOWN INDICATION
     Dosage: UNK UNK, UNKNOWN
     Route: 048
  5. PANTOPRAZOLE SODIUM [Concomitant]
     Indication: PRODUCT USED FOR UNKNOWN INDICATION
     Dosage: UNK UNK, UNKNOWN
     Route: 065
  6. INDOMETACINE [Concomitant]
     Indication: PRODUCT USED FOR UNKNOWN INDICATION
     Dosage: UNK UNK, UNKNOWN
     Route: 065

REACTIONS (2)
  - Syncope [Recovering/Resolving]
  - Hyponatraemia [Recovering/Resolving]
